FAERS Safety Report 25628804 (Version 4)
Quarter: 2025Q3

REPORT INFORMATION
  Report Type: Spontaneous
  Country: US (occurrence: US)
  Receive Date: 20250731
  Receipt Date: 20250828
  Transmission Date: 20251020
  Serious: No
  Sender: ALEXION PHARMACEUTICALS
  Company Number: US-AstraZeneca-CH-00921477AP

PATIENT
  Age: 76 Year
  Sex: Female

DRUGS (1)
  1. AIRSUPRA [Suspect]
     Active Substance: ALBUTEROL SULFATE\BUDESONIDE
     Route: 065

REACTIONS (3)
  - Vision blurred [Unknown]
  - Device delivery system issue [Unknown]
  - Product dose omission issue [Unknown]
